FAERS Safety Report 5933135-2 (Version None)
Quarter: 2008Q4

REPORT INFORMATION
  Report Type: 
  Country: None (occurrence: None)
  Receive Date: 20081028
  Receipt Date: 20081022
  Transmission Date: 20090506
  Serious: Yes (Other)
  Sender: FDA-Public Use
  Company Number: US-JNJCH-2008052741

PATIENT
  Age: 48 Year
  Sex: Female
  Weight: 68 kg

DRUGS (1)
  1. ZYRTEC [Suspect]
     Indication: HYPERSENSITIVITY
     Route: 048

REACTIONS (6)
  - CARDIAC DISORDER [None]
  - COGNITIVE DISORDER [None]
  - DIZZINESS [None]
  - NAUSEA [None]
  - THINKING ABNORMAL [None]
  - WITHDRAWAL SYNDROME [None]
